FAERS Safety Report 19745552 (Version 3)
Quarter: 2021Q3

REPORT INFORMATION
  Report Type: Spontaneous
  Country: FR (occurrence: FR)
  Receive Date: 20210825
  Receipt Date: 20210831
  Transmission Date: 20211014
  Serious: Yes (Other)
  Sender: FDA-Public Use
  Company Number: FR-UCBSA-2021039786

PATIENT
  Age: 40 Year
  Sex: Female

DRUGS (3)
  1. CIMZIA [Suspect]
     Active Substance: CERTOLIZUMAB PEGOL
     Indication: AXIAL SPONDYLOARTHRITIS
     Dosage: UNK
     Dates: start: 201609, end: 202009
  2. CIMZIA [Suspect]
     Active Substance: CERTOLIZUMAB PEGOL
     Dosage: UNK UNK, EV 3 WEEKS
  3. CIMZIA [Suspect]
     Active Substance: CERTOLIZUMAB PEGOL
     Dosage: UNK, MONTHLY (QM)
     Dates: end: 202009

REACTIONS (6)
  - Enthesopathy [Unknown]
  - Sleep disorder [Unknown]
  - Axial spondyloarthritis [Unknown]
  - Crohn^s disease [Unknown]
  - Myalgia [Unknown]
  - Product use issue [Unknown]

NARRATIVE: CASE EVENT DATE: 202009
